FAERS Safety Report 6785785-1 (Version None)
Quarter: 2010Q2

REPORT INFORMATION
  Report Type: 
  Country: None (occurrence: None)
  Receive Date: 20100623
  Receipt Date: 20100615
  Transmission Date: 20101027
  Serious: Yes (Other)
  Sender: FDA-Public Use
  Company Number: US-SANOFI-AVENTIS-2010SA028170

PATIENT
  Age: 82 Year
  Sex: Male
  Weight: 64 kg

DRUGS (11)
  1. LANTUS [Suspect]
     Indication: TYPE 2 DIABETES MELLITUS
     Dosage: DOSE:16 UNIT(S)
     Route: 058
     Dates: start: 20080101
  2. SOLOSTAR [Suspect]
     Dates: start: 20080101
  3. APIDRA [Suspect]
     Indication: TYPE 2 DIABETES MELLITUS
     Dosage: DOSE:5 UNIT(S)
     Route: 058
     Dates: start: 20090106
  4. OPTICLICK [Suspect]
     Dates: start: 20070101
  5. PLAVIX [Concomitant]
     Route: 065
  6. NIASPAN [Concomitant]
     Route: 065
  7. PRAVASTATIN [Concomitant]
     Route: 065
  8. RANITIDINE [Concomitant]
     Route: 065
  9. FOLIC ACID [Concomitant]
     Route: 065
  10. COZAAR [Concomitant]
     Route: 065
  11. GABAPENTIN [Concomitant]
     Route: 065

REACTIONS (1)
  - CATARACT [None]
